FAERS Safety Report 6945169-X (Version None)
Quarter: 2010Q3

REPORT INFORMATION
  Report Type: 
  Country: None (occurrence: None)
  Receive Date: 20100827
  Receipt Date: 20100505
  Transmission Date: 20110219
  Serious: No
  Sender: FDA-Public Use
  Company Number: US-KINGPHARMUSA00001-K201000571

PATIENT
  Age: 55 Year
  Sex: Male

DRUGS (1)
  1. FLECTOR [Suspect]
     Indication: ARTHRALGIA
     Dosage: 1 PATCH, EVERY 12 HOURS
     Route: 061
     Dates: start: 20100301

REACTIONS (1)
  - HAEMORRHOIDAL HAEMORRHAGE [None]
